FAERS Safety Report 12758444 (Version 1)
Quarter: 2016Q3

REPORT INFORMATION
  Report Type: Spontaneous
  Country: US (occurrence: US)
  Receive Date: 20160917
  Receipt Date: 20160917
  Transmission Date: 20161109
  Serious: Yes (Disabling, Other)
  Sender: FDA-Public Use
  Company Number: None

PATIENT
  Age: 35 Year
  Sex: Female
  Weight: 103.5 kg

DRUGS (3)
  1. HYOSCYAMINE SULFATE 0.125MG TAB [Suspect]
     Active Substance: HYOSCYAMINE SULFATE
     Indication: GASTROINTESTINAL PAIN
     Route: 048
     Dates: start: 20160531
  2. FLEXERIL [Concomitant]
     Active Substance: CYCLOBENZAPRINE HYDROCHLORIDE
  3. HYOSCYAMINE SULFATE 0.125MG TAB [Suspect]
     Active Substance: HYOSCYAMINE SULFATE
     Indication: VOLVULUS
     Route: 048
     Dates: start: 20160531

REACTIONS (3)
  - Palpitations [None]
  - Amnesia [None]
  - Feeling abnormal [None]

NARRATIVE: CASE EVENT DATE: 20160608
